FAERS Safety Report 5988180-8 (Version None)
Quarter: 2008Q4

REPORT INFORMATION
  Report Type: 
  Country: None (occurrence: None)
  Receive Date: 20081203
  Receipt Date: 20080917
  Transmission Date: 20090506
  Serious: Yes (Other)
  Sender: FDA-Public Use
  Company Number: 8039960

PATIENT
  Age: 33 Year
  Sex: Female

DRUGS (3)
  1. XYZAL [Suspect]
     Indication: URTICARIA
     Dosage: 5 MG 1/D PO
     Route: 048
     Dates: start: 20080718, end: 20080720
  2. CLARITIN [Concomitant]
  3. CORTICOSTEROID [Concomitant]

REACTIONS (2)
  - ABORTION SPONTANEOUS [None]
  - DRUG EXPOSURE DURING PREGNANCY [None]
